FAERS Safety Report 9542476 (Version 2)
Quarter: 2013Q3

REPORT INFORMATION
  Report Type: Spontaneous
  Country: NL (occurrence: NL)
  Receive Date: 20130923
  Receipt Date: 20130926
  Transmission Date: 20140515
  Serious: Yes (Life-Threatening)
  Sender: FDA-Public Use
  Company Number: NL-SANOFI-AVENTIS-2013SA091444

PATIENT
  Age: 66 Year
  Sex: Female

DRUGS (3)
  1. CLEXANE [Suspect]
     Indication: CEREBROVASCULAR ACCIDENT
     Route: 065
     Dates: start: 20100305
  2. ASCAL CARDIO [Suspect]
     Indication: CEREBROVASCULAR ACCIDENT
     Route: 048
     Dates: start: 20100305
  3. NEXIUM [Concomitant]
     Dosage: STRENGTH-40 MG
     Route: 048

REACTIONS (4)
  - Anaphylactic shock [Recovered/Resolved]
  - Hypotension [Recovered/Resolved]
  - Pruritus [Recovered/Resolved]
  - Erythema [Recovered/Resolved]
